FAERS Safety Report 5222805-X (Version None)
Quarter: 2007Q1

REPORT INFORMATION
  Report Type: 
  Country: None (occurrence: None)
  Receive Date: 20070129
  Receipt Date: 20070126
  Transmission Date: 20070707
  Serious: Yes (Other)
  Sender: FDA-Public Use
  Company Number: CA-GLAXOSMITHKLINE-A0637256A

PATIENT
  Sex: Male

DRUGS (1)
  1. PAXIL [Suspect]
     Dosage: 20MG PER DAY

REACTIONS (20)
  - ABDOMINAL DISCOMFORT [None]
  - AGGRESSION [None]
  - ANGER [None]
  - ANHEDONIA [None]
  - ANXIETY [None]
  - APATHY [None]
  - CHILLS [None]
  - DEPRESSION [None]
  - ECONOMIC PROBLEM [None]
  - FACE OEDEMA [None]
  - FEAR [None]
  - FEELING OF DESPAIR [None]
  - HEADACHE [None]
  - MEMORY IMPAIRMENT [None]
  - NAUSEA [None]
  - PANIC ATTACK [None]
  - PARAESTHESIA [None]
  - RESTLESSNESS [None]
  - SUICIDAL IDEATION [None]
  - WEIGHT INCREASED [None]
